FAERS Safety Report 19606625 (Version 2)
Quarter: 2022Q1

REPORT INFORMATION
  Report Type: Spontaneous
  Country: US (occurrence: US)
  Receive Date: 20210725
  Receipt Date: 20220131
  Transmission Date: 20220424
  Serious: No
  Sender: FDA-Public Use
  Company Number: US-CELGENE-USA-20210703314

PATIENT
  Sex: Male
  Weight: 86.260 kg

DRUGS (2)
  1. POMALYST [Suspect]
     Active Substance: POMALIDOMIDE
     Indication: Plasma cell myeloma in remission
     Dosage: 3 MILLIGRAM
     Route: 048
     Dates: start: 201912
  2. POMALYST [Suspect]
     Active Substance: POMALIDOMIDE
     Dosage: 2 MILLIGRAM
     Route: 048
     Dates: start: 202008

REACTIONS (3)
  - Diarrhoea [Not Recovered/Not Resolved]
  - Dizziness [Unknown]
  - Abdominal pain upper [Unknown]
